FAERS Safety Report 6389801-0 (Version None)
Quarter: 2009Q4

REPORT INFORMATION
  Report Type: 
  Country: None (occurrence: None)
  Receive Date: 20091003
  Receipt Date: 20090922
  Transmission Date: 20100525
  Serious: Yes (Death, Other)
  Sender: FDA-Public Use
  Company Number: 2009AP003730

PATIENT
  Age: 35 Year
  Sex: Male

DRUGS (4)
  1. SERTRALINE HCL [Suspect]
  2. METHADONE HCL [Suspect]
     Dosage: 20 TAB; 1X
  3. VENLAFAXINE HYDROCHLORIDE [Suspect]
  4. TOPIRAMATE [Concomitant]

REACTIONS (20)
  - ANXIETY [None]
  - ASPIRATION [None]
  - BLOOD PRESSURE INCREASED [None]
  - BRADYPHRENIA [None]
  - CONFUSIONAL STATE [None]
  - DEPRESSION [None]
  - DISORIENTATION [None]
  - DRUG INTERACTION [None]
  - DRUG TOXICITY [None]
  - FRUSTRATION [None]
  - HEART RATE INCREASED [None]
  - INTENTIONAL OVERDOSE [None]
  - LOSS OF CONSCIOUSNESS [None]
  - NIGHTMARE [None]
  - PANIC REACTION [None]
  - RESPIRATORY DEPRESSION [None]
  - SEROTONIN SYNDROME [None]
  - SUICIDAL IDEATION [None]
  - SUICIDE ATTEMPT [None]
  - VOMITING [None]
